FAERS Safety Report 16761204 (Version 1)
Quarter: 2019Q3

REPORT INFORMATION
  Report Type: Spontaneous
  Country: US (occurrence: US)
  Receive Date: 20190830
  Receipt Date: 20190830
  Transmission Date: 20191005
  Serious: Yes (Other)
  Sender: FDA-Public Use
  Company Number: US-ANIPHARMA-2019-US-007623

PATIENT
  Age: 51 Year
  Sex: Female

DRUGS (5)
  1. FASLODEX [Suspect]
     Active Substance: FULVESTRANT
     Dates: start: 201506
  2. OA INJECTIONS [Suspect]
     Active Substance: UNSPECIFIED INGREDIENT
     Dates: start: 201503
  3. LETROZOLE. [Suspect]
     Active Substance: LETROZOLE
     Dates: start: 201504
  4. ZOLADEX [Suspect]
     Active Substance: GOSERELIN ACETATE
     Dates: start: 201506, end: 201512
  5. ARIMIDEX [Suspect]
     Active Substance: ANASTROZOLE
     Indication: BREAST CANCER
     Dosage: UNK
     Route: 048
     Dates: start: 20150313, end: 20170316

REACTIONS (2)
  - Arthralgia [Unknown]
  - Disease progression [Unknown]

NARRATIVE: CASE EVENT DATE: 201703
